FAERS Safety Report 8846611 (Version 1)
Quarter: 2012Q4

REPORT INFORMATION
  Report Type: Report from Study
  Country: US (occurrence: US)
  Receive Date: 20121017
  Receipt Date: 20121017
  Transmission Date: 20130627
  Serious: Yes (Hospitalization)
  Sender: FDA-Public Use
  Company Number: US-ABBOTT-12P-163-0993643-00

PATIENT
  Age: 30 Year
  Sex: Female

DRUGS (5)
  1. HUMIRA [Suspect]
     Indication: ANKYLOSING SPONDYLITIS
  2. METHOTREXATE [Concomitant]
     Indication: PRODUCT USED FOR UNKNOWN INDICATION
  3. OXYCONTIN [Concomitant]
     Indication: PAIN
     Dosage: Rarely, when in pain
  4. UNKNOWN NSAIDS [Concomitant]
     Indication: PRODUCT USED FOR UNKNOWN INDICATION
  5. MULTIPLE UNKNOWN MEDICATIONS [Concomitant]
     Indication: PRODUCT USED FOR UNKNOWN INDICATION

REACTIONS (9)
  - Enzyme level increased [Not Recovered/Not Resolved]
  - Injection site pain [Unknown]
  - Drug ineffective [Unknown]
  - Iritis [Unknown]
  - Nasopharyngitis [Unknown]
  - Asthenia [Unknown]
  - Gait disturbance [Unknown]
  - Muscle atrophy [Unknown]
  - Viral infection [Not Recovered/Not Resolved]
